FAERS Safety Report 12711351 (Version 2)
Quarter: 2016Q4

REPORT INFORMATION
  Report Type: Report from Study
  Country: JP (occurrence: JP)
  Receive Date: 20160902
  Receipt Date: 20161104
  Transmission Date: 20170207
  Serious: Yes (Death)
  Sender: FDA-Public Use
  Company Number: JP-SA-THYM-1002241

PATIENT
  Age: 73 Year
  Sex: Female
  Weight: 44 kg

DRUGS (18)
  1. PROGRAF [Concomitant]
     Active Substance: TACROLIMUS\TACROLIMUS ANHYDROUS
     Indication: PROPHYLAXIS AGAINST GRAFT VERSUS HOST DISEASE
     Dosage: UNK
     Dates: start: 20100628, end: 20100728
  2. VANCOMYCIN [Concomitant]
     Active Substance: VANCOMYCIN
     Indication: INFECTION PROPHYLAXIS
     Dosage: UNK
     Dates: start: 20100601, end: 20100710
  3. LASTET [Concomitant]
     Active Substance: ETOPOSIDE
     Dosage: UNK
     Dates: start: 20100622, end: 20100623
  4. BUSULFEX [Concomitant]
     Active Substance: BUSULFAN
     Dosage: UNK
     Dates: start: 20100624, end: 20100626
  5. SOL-MELCORT [Concomitant]
     Active Substance: METHYLPREDNISOLONE SODIUM SUCCINATE
     Indication: PROPHYLAXIS AGAINST GRAFT VERSUS HOST DISEASE
     Dosage: UNK
     Dates: start: 20100625, end: 20100728
  6. CARBENIN [Concomitant]
     Active Substance: BETAMIPRON\PANIPENEM
     Indication: INFECTION PROPHYLAXIS
     Dosage: UNK
     Dates: start: 20100601, end: 20100623
  7. SOSEGON [Concomitant]
     Active Substance: PENTAZOCINE
     Dosage: UNK
     Dates: start: 20100617, end: 20100701
  8. ITRIZOLE [Concomitant]
     Active Substance: ITRACONAZOLE
     Indication: INFECTION PROPHYLAXIS
     Dosage: UNK
     Dates: start: 20100609, end: 20100622
  9. ALKERAN [Concomitant]
     Active Substance: MELPHALAN
     Dosage: UNK
     Dates: start: 20100626, end: 20100627
  10. ACICLOVIR [Concomitant]
     Active Substance: ACYCLOVIR
     Dosage: UNK
     Dates: start: 20100704, end: 20100723
  11. THYMOGLOBULINE [Suspect]
     Active Substance: LAPINE T-LYMPHOCYTE IMMUNE GLOBULIN
     Indication: BONE MARROW CONDITIONING REGIMEN
     Dosage: 110 MG, QD
     Route: 042
     Dates: start: 20100625, end: 20100625
  12. BAKTAR [Concomitant]
     Active Substance: SULFAMETHOXAZOLE\TRIMETHOPRIM
     Indication: INFECTION PROPHYLAXIS
     Dosage: UNK
     Dates: start: 20100609, end: 20100709
  13. FOSCAVIR [Concomitant]
     Active Substance: FOSCARNET SODIUM
     Dosage: UNK
     Dates: start: 20100606, end: 20100722
  14. KYTRIL [Concomitant]
     Active Substance: GRANISETRON HYDROCHLORIDE
     Indication: ANTIEMETIC SUPPORTIVE CARE
     Dosage: UNK
     Dates: start: 20100622, end: 20100627
  15. FUNGUARD [Concomitant]
     Active Substance: MICAFUNGIN SODIUM
     Indication: INFECTION PROPHYLAXIS
     Dosage: UNK
     Dates: start: 20100701, end: 20100702
  16. PENTCILLIN [Concomitant]
     Active Substance: PIPERACILLIN SODIUM
     Indication: INFECTION PROPHYLAXIS
     Dosage: UNK
     Dates: start: 20100601, end: 20100623
  17. VFEND [Concomitant]
     Active Substance: VORICONAZOLE
     Dosage: UNK
     Dates: start: 20100623, end: 20100729
  18. FLUDARA [Suspect]
     Active Substance: FLUDARABINE PHOSPHATE
     Indication: PRODUCT USED FOR UNKNOWN INDICATION
     Dosage: UNK
     Route: 042
     Dates: start: 20100622, end: 20100627

REACTIONS (2)
  - Renal disorder [Fatal]
  - Liver disorder [Fatal]

NARRATIVE: CASE EVENT DATE: 20100704
